FAERS Safety Report 17195321 (Version 1)
Quarter: 2019Q4

REPORT INFORMATION
  Report Type: Spontaneous
  Country: DE (occurrence: DE)
  Receive Date: 20191224
  Receipt Date: 20191224
  Transmission Date: 20200122
  Serious: No
  Sender: FDA-Public Use
  Company Number: DE-ALKEM LABORATORIES LIMITED-DE-ALKEM-2019-01575

PATIENT
  Age: 57 Year
  Sex: Female

DRUGS (8)
  1. COLCHICINE. [Suspect]
     Active Substance: COLCHICINE
     Indication: PEMPHIGUS
     Dosage: 3 MG, OD
     Route: 065
  2. MYCOPHENOLATE MOFETIL. [Suspect]
     Active Substance: MYCOPHENOLATE MOFETIL
     Indication: PEMPHIGUS
     Dosage: 2 G, MONTHS
     Route: 065
  3. ACITRETIN. [Suspect]
     Active Substance: ACITRETIN
     Indication: PEMPHIGUS
     Dosage: 0.5 MG/KG, UNK
     Route: 065
  4. PREDNISOLONE. [Suspect]
     Active Substance: PREDNISOLONE
     Indication: PEMPHIGUS
     Dosage: 7.5 MG, UNK
     Route: 065
  5. ALITRETINOIN [Suspect]
     Active Substance: ALITRETINOIN
     Indication: PEMPHIGUS
     Dosage: 30 MG, OD
     Route: 065
  6. DAPSONE. [Suspect]
     Active Substance: DAPSONE
     Indication: PEMPHIGUS
     Dosage: 1 MG/KG, UNK
     Route: 065
  7. PREDNISOLONE. [Suspect]
     Active Substance: PREDNISOLONE
     Dosage: 10 MG, UNK
     Route: 065
  8. AZATHIOPRINE. [Suspect]
     Active Substance: AZATHIOPRINE
     Indication: PEMPHIGUS
     Dosage: 1.5 MG/KG, UNK
     Route: 065

REACTIONS (4)
  - Mucosal dryness [Unknown]
  - Drug ineffective [Unknown]
  - Alopecia [Unknown]
  - Dizziness [Unknown]
